FAERS Safety Report 8601374-8 (Version None)
Quarter: 2012Q3

REPORT INFORMATION
  Report Type: 
  Country: None (occurrence: None)
  Receive Date: 20120817
  Receipt Date: 20120802
  Transmission Date: 20120928
  Serious: Yes (Other)
  Sender: FDA-Public Use
  Company Number: ZA-BRISTOL-MYERS SQUIBB COMPANY-16858938

PATIENT
  Sex: Female

DRUGS (1)
  1. EFAVIRENZ [Suspect]
     Indication: HIV INFECTION
     Route: 048

REACTIONS (4)
  - PREGNANCY [None]
  - ABORTION SPONTANEOUS [None]
  - ABORTION INDUCED [None]
  - MATERNAL EXPOSURE DURING PREGNANCY [None]
